FAERS Safety Report 7174377-0 (Version None)
Quarter: 2010Q4

REPORT INFORMATION
  Report Type: 
  Country: None (occurrence: None)
  Receive Date: 20101219
  Receipt Date: 20100326
  Transmission Date: 20110411
  Serious: No
  Sender: FDA-Public Use
  Company Number: US-AMGEN-KDL400245

PATIENT

DRUGS (17)
  1. ENBREL [Suspect]
     Indication: PSORIATIC ARTHROPATHY
     Dosage: 50 MG, QWK
     Route: 058
     Dates: start: 20100315
  2. ENBREL [Suspect]
     Dosage: 50 MG, QWK
     Route: 058
     Dates: start: 20100315
  3. TRAMADOL HYDROCHLORIDE [Concomitant]
     Dosage: 50 MG, PRN
     Route: 048
     Dates: start: 20100305
  4. CEFUROXIME AXETIL [Concomitant]
     Dosage: 500 MG, UNK
     Route: 048
     Dates: start: 20100225
  5. ERGOCALCIFEROL [Concomitant]
     Dosage: 1000 IU, UNK
     Route: 048
     Dates: start: 20091217
  6. FOLIC ACID [Concomitant]
     Dosage: 1 MG, QD
     Route: 048
     Dates: start: 20091217
  7. OMEPRAZOLE [Concomitant]
     Dosage: 20 MG, QD
     Route: 048
     Dates: start: 20091217
  8. METHOTREXATE SODIUM [Concomitant]
     Dosage: 2.5 MG, QWK
     Route: 048
     Dates: start: 20091217
  9. MELOXICAM [Concomitant]
     Dosage: 15 MG, QD
     Route: 048
     Dates: start: 20091217
  10. DILTIAZEM HYDROCHLORIDE [Concomitant]
     Dosage: 180 MG, QD
     Route: 048
     Dates: start: 20090827
  11. SIMVASTATIN [Concomitant]
     Dosage: 40 MG, UNK
     Route: 048
     Dates: start: 20090827
  12. SALMON OIL [Concomitant]
     Dosage: 200 MG, UNK
     Route: 048
     Dates: start: 20090827
  13. LEVOTHYROXINE SODIUM [Concomitant]
     Dosage: 50 A?G, UNK
     Route: 048
     Dates: start: 20090827
  14. ASPIRIN [Concomitant]
     Dosage: 81 MG, PRN
     Dates: start: 20090827
  15. VIVELLE [Concomitant]
     Dosage: .075 MG, UNK
     Dates: start: 20090827
  16. CETIRIZINE HYDROCHLORIDE [Concomitant]
     Dosage: 10 MG, UNK
     Route: 048
     Dates: start: 20090827
  17. CENTRUM [Concomitant]
     Dosage: UNK UNK, UNK
     Route: 048
     Dates: start: 20090827

REACTIONS (8)
  - FATIGUE [None]
  - HEADACHE [None]
  - INJECTION SITE ERYTHEMA [None]
  - INJECTION SITE PAIN [None]
  - INJECTION SITE RASH [None]
  - INJECTION SITE SWELLING [None]
  - NAUSEA [None]
  - PAIN IN EXTREMITY [None]
